FAERS Safety Report 5333419-5 (Version None)
Quarter: 2007Q2

REPORT INFORMATION
  Report Type: 
  Country: None (occurrence: None)
  Receive Date: 20070522
  Receipt Date: 20070522
  Transmission Date: 20071010
  Serious: Yes (Other)
  Sender: FDA-Public Use
  Company Number: None

PATIENT
  Age: 72 Year
  Sex: Female
  Weight: 92.9 kg

DRUGS (2)
  1. BEVACIZUMAB 25 MG/ML AMGEN, INC [Suspect]
     Indication: OVARIAN CANCER RECURRENT
     Dosage: 10MG/KG Q 2 WKS/ 4 WK CYCL IV DRIP
     Route: 041
     Dates: start: 20070504, end: 20070504
  2. TOPOTECAN  4 MG PER VIAL LYOPHILIZED  GLAXOSMITHKLINE [Suspect]
     Dosage: 4 MG/METER SQUARED Q WEEK FOR 3 WKS; IV DRIP
     Route: 041
     Dates: start: 20070510, end: 20070510

REACTIONS (2)
  - CATHETER SITE HAEMORRHAGE [None]
  - THROMBOCYTOPENIA [None]
